FAERS Safety Report 19502091 (Version 1)
Quarter: 2021Q3

REPORT INFORMATION
  Report Type: Spontaneous
  Country: SG (occurrence: SG)
  Receive Date: 20210707
  Receipt Date: 20210707
  Transmission Date: 20211014
  Serious: Yes (Hospitalization, Other)
  Sender: FDA-Public Use
  Company Number: SG-B.I. PHARMACEUTICALS,INC./RIDGEFIELD-2021-BI-113743

PATIENT
  Age: 75 Year
  Sex: Male

DRUGS (2)
  1. JARDIANCE [Suspect]
     Active Substance: EMPAGLIFLOZIN
     Dates: start: 20210620
  2. JARDIANCE [Suspect]
     Active Substance: EMPAGLIFLOZIN
     Indication: PRODUCT USED FOR UNKNOWN INDICATION
     Route: 065
     Dates: start: 20210614

REACTIONS (3)
  - Shock [Not Recovered/Not Resolved]
  - Diabetic ketoacidosis [Not Recovered/Not Resolved]
  - Mental status changes [Not Recovered/Not Resolved]

NARRATIVE: CASE EVENT DATE: 20210621
